FAERS Safety Report 4345912-2 (Version None)
Quarter: 2004Q1

REPORT INFORMATION
  Report Type: 
  Country: None (occurrence: None)
  Receive Date: 20040325
  Receipt Date: 20040121
  Transmission Date: 20041129
  Serious: No
  Sender: FDA-Public Use
  Company Number: USA031254281

PATIENT
  Age: 86 Year
  Sex: Female

DRUGS (7)
  1. FORTEO [Suspect]
     Indication: OSTEOPOROSIS
     Dates: start: 20031202
  2. HYDROCHLOROTHIAZIDE [Concomitant]
  3. SINEMET [Concomitant]
  4. BABY ASPIRIN (ACETYLASLICYLIC ACID) [Concomitant]
  5. APO-METOPROLOL (METOPROLOL TARTRATE) [Concomitant]
  6. ACCOMIN MULTIVITAMIN [Concomitant]
  7. CALCIUM [Concomitant]

REACTIONS (6)
  - BURNING SENSATION [None]
  - DIFFICULTY IN WALKING [None]
  - JOINT SWELLING [None]
  - OEDEMA PERIPHERAL [None]
  - PARAESTHESIA [None]
  - POLLAKIURIA [None]
